FAERS Safety Report 17997277 (Version 1)
Quarter: 2020Q3

REPORT INFORMATION
  Report Type: Spontaneous
  Country: US (occurrence: US)
  Receive Date: 20200709
  Receipt Date: 20200709
  Transmission Date: 20201103
  Serious: Yes (Other)
  Sender: FDA-Public Use
  Company Number: US-ROCHE-2637320

PATIENT
  Sex: Female

DRUGS (1)
  1. ESBRIET [Suspect]
     Active Substance: PIRFENIDONE
     Indication: IDIOPATHIC PULMONARY FIBROSIS
     Dosage: TAKE 3 TABLET BY MOUTH IN A DAY WITH MEAL
     Route: 048

REACTIONS (4)
  - Skin neoplasm excision [Unknown]
  - Oxygen therapy [Unknown]
  - Haemoptysis [Unknown]
  - Dyspnoea [Unknown]
